FAERS Safety Report 14641293 (Version 2)
Quarter: 2018Q2

REPORT INFORMATION
  Report Type: Spontaneous
  Country: DE (occurrence: DE)
  Receive Date: 20180315
  Receipt Date: 20180621
  Transmission Date: 20180711
  Serious: Yes (Other)
  Sender: FDA-Public Use
  Company Number: DE-WEST-WARD PHARMACEUTICALS CORP.-DE-H14001-18-01807

PATIENT
  Age: 73 Year
  Sex: Male
  Weight: 72.9 kg

DRUGS (40)
  1. CAPECITABINE. [Suspect]
     Active Substance: CAPECITABINE
     Dosage: ()
     Route: 048
     Dates: start: 20171002
  2. ATROPIN [Concomitant]
     Active Substance: ATROPINE
     Route: 058
     Dates: start: 20170706, end: 20170706
  3. GRANISETRON [Concomitant]
     Active Substance: GRANISETRON
     Indication: NAUSEA
     Dosage: BEFORE CHEMOTHERAPY
     Route: 042
     Dates: start: 20160831, end: 20160831
  4. IRINOTECAN [Concomitant]
     Active Substance: IRINOTECAN
     Indication: COLORECTAL CANCER
     Route: 042
     Dates: start: 20160204, end: 20170517
  5. DEXAMETHASON [Concomitant]
     Active Substance: DEXAMETHASONE
     Indication: INFECTION
     Route: 042
     Dates: start: 20170112, end: 20170112
  6. BEVACIZUMAB. [Suspect]
     Active Substance: BEVACIZUMAB
     Route: 042
     Dates: start: 20171002, end: 20171002
  7. DEXAMETHASON [Concomitant]
     Active Substance: DEXAMETHASONE
     Indication: CHOLINERGIC SYNDROME
     Dosage: BEFORE CHEMOTHERAPY
     Route: 042
     Dates: start: 20160831, end: 20160831
  8. ATROPIN [Concomitant]
     Active Substance: ATROPINE
     Indication: CHOLINERGIC SYNDROME
     Route: 058
     Dates: start: 20170112, end: 20170112
  9. GRANISETRON [Concomitant]
     Active Substance: GRANISETRON
     Indication: VOMITING
     Route: 042
     Dates: start: 20170112, end: 20170112
  10. ASPIRIN. [Concomitant]
     Active Substance: ASPIRIN
     Indication: BASAL GANGLIA INFARCTION
     Route: 048
     Dates: start: 20160215
  11. VIGANTOLETTEN [Concomitant]
     Active Substance: CHOLECALCIFEROL
     Indication: VITAMIN D DEFICIENCY
     Route: 048
     Dates: start: 20160201
  12. BEVACIZUMAB. [Suspect]
     Active Substance: BEVACIZUMAB
     Route: 042
     Dates: start: 20170202, end: 20170202
  13. DEXAMETHASON [Concomitant]
     Active Substance: DEXAMETHASONE
     Route: 048
     Dates: start: 20170112, end: 20170113
  14. DEXAMETHASON [Concomitant]
     Active Substance: DEXAMETHASONE
     Dosage: CYCLIAL?BEFORE CHEMOTHERAPY
     Route: 042
     Dates: start: 20170316, end: 20170706
  15. DEXAMETHASON [Concomitant]
     Active Substance: DEXAMETHASONE
     Route: 048
     Dates: start: 20170706, end: 20170707
  16. VIGANTOLETTEN [Concomitant]
     Active Substance: CHOLECALCIFEROL
     Indication: VITAMIN D DEFICIENCY
  17. RAMIPRIL. [Concomitant]
     Active Substance: RAMIPRIL
     Indication: HYPERTENSION
     Route: 048
     Dates: start: 2006
  18. CAPECITABINE. [Suspect]
     Active Substance: CAPECITABINE
     Indication: COLORECTAL CANCER METASTATIC
     Route: 048
     Dates: start: 20170202, end: 20170215
  19. CAPECITABINE. [Suspect]
     Active Substance: CAPECITABINE
     Route: 048
     Dates: start: 20170517, end: 20170903
  20. CAPECITABINE. [Suspect]
     Active Substance: CAPECITABINE
     Route: 048
     Dates: start: 20160204, end: 20160217
  21. DEXAMETHASON [Concomitant]
     Active Substance: DEXAMETHASONE
     Route: 042
     Dates: start: 20170706, end: 20170706
  22. VERGENTAN [Concomitant]
     Active Substance: ALIZAPRIDE HYDROCHLORIDE
     Route: 048
     Dates: start: 20170615
  23. CALCIMAGON D3 [Concomitant]
     Active Substance: CALCIUM\CHOLECALCIFEROL
     Indication: VITAMIN D DEFICIENCY
     Route: 048
     Dates: start: 20160209
  24. DEXAMETHASON [Concomitant]
     Active Substance: DEXAMETHASONE
     Route: 048
     Dates: start: 20170517, end: 20170517
  25. ATROPIN [Concomitant]
     Active Substance: ATROPINE
     Indication: DIARRHOEA
     Dosage: BEFORE IRINOTECAN ADMINISTRATION
     Route: 058
     Dates: start: 20160204, end: 20160630
  26. GRANISETRON [Concomitant]
     Active Substance: GRANISETRON
     Dosage: BEFORE CHEMOTHERAPY
     Route: 042
     Dates: start: 20170316, end: 20170706
  27. KEVATRIL [Concomitant]
     Active Substance: GRANISETRON HYDROCHLORIDE
     Indication: NAUSEA
     Dosage: ()
     Route: 065
  28. CORTISONE [Concomitant]
     Active Substance: CORTISONE\HYDROCORTISONE
     Indication: PRODUCT USED FOR UNKNOWN INDICATION
     Dosage: ()
     Route: 065
     Dates: start: 20170706, end: 20170707
  29. BEVACIZUMAB. [Suspect]
     Active Substance: BEVACIZUMAB
     Indication: COLORECTAL CANCER METASTATIC
     Route: 042
     Dates: start: 20160630
  30. FORTECORTIN [Concomitant]
     Active Substance: DEXAMETHASONE
     Indication: NAUSEA
     Dosage: ()
     Route: 065
  31. FORTECORTIN [Concomitant]
     Active Substance: DEXAMETHASONE
     Indication: VOMITING
     Dosage: DAY 1 OF CYCLE ; CYCLICAL
     Route: 042
     Dates: start: 20160204, end: 20160630
  32. GRANISETRON [Concomitant]
     Active Substance: GRANISETRON
     Route: 042
     Dates: start: 20170706, end: 20170706
  33. KEVATRIL [Concomitant]
     Active Substance: GRANISETRON HYDROCHLORIDE
     Indication: VOMITING
     Dosage: DAY 1 OF CYCLE ; CYCLICAL
     Route: 042
     Dates: start: 20160204, end: 20160630
  34. SIMVASTATIN. [Concomitant]
     Active Substance: SIMVASTATIN
     Indication: PRODUCT USED FOR UNKNOWN INDICATION
     Route: 048
     Dates: start: 2006
  35. LAXOBERAL [Concomitant]
     Active Substance: SODIUM PICOSULFATE
     Indication: CONSTIPATION
     Route: 048
     Dates: start: 20160407, end: 20160407
  36. BEVACIZUMAB. [Suspect]
     Active Substance: BEVACIZUMAB
     Route: 042
     Dates: start: 20180204, end: 20180204
  37. ATROPIN [Concomitant]
     Active Substance: ATROPINE
     Dosage: BEFORE IRINOTECAN ADMINISTRATION
     Route: 042
     Dates: start: 20170316, end: 20170517
  38. VERGENTAN [Concomitant]
     Active Substance: ALIZAPRIDE HYDROCHLORIDE
     Indication: VOMITING
     Route: 048
     Dates: start: 20160204, end: 20160702
  39. IRINOTECAN [Concomitant]
     Active Substance: IRINOTECAN
     Route: 042
     Dates: start: 20170112, end: 20170112
  40. AKNEDERM ERY [Concomitant]
     Indication: PRODUCT USED FOR UNKNOWN INDICATION
     Route: 065
     Dates: start: 20161012

REACTIONS (20)
  - Palmar-plantar erythrodysaesthesia syndrome [Recovered/Resolved]
  - Mucosal inflammation [Recovered/Resolved]
  - Rash [Recovered/Resolved]
  - Bradycardia [Recovered/Resolved]
  - Hypokalaemia [Not Recovered/Not Resolved]
  - Nausea [Recovered/Resolved]
  - Arthropod sting [Recovered/Resolved]
  - Vomiting [Recovered/Resolved]
  - Dermatitis acneiform [Recovered/Resolved]
  - Cystitis [Recovered/Resolved]
  - Urinary retention [Recovered/Resolved]
  - Swelling [Recovered/Resolved]
  - Hyperhidrosis [Recovered/Resolved]
  - Alopecia [Not Recovered/Not Resolved]
  - Decreased appetite [Recovered/Resolved]
  - Hypertension [Recovered/Resolved]
  - Neutrophil count decreased [Not Recovered/Not Resolved]
  - Proteinuria [Not Recovered/Not Resolved]
  - Constipation [Recovered/Resolved]
  - Weight decreased [Recovered/Resolved]

NARRATIVE: CASE EVENT DATE: 20160318
